FAERS Safety Report 17543155 (Version 4)
Quarter: 2020Q3

REPORT INFORMATION
  Report Type: Report from Study
  Country: None (occurrence: BR)
  Receive Date: 20200316
  Receipt Date: 20200730
  Transmission Date: 20201102
  Serious: Yes (Other)
  Sender: FDA-Public Use
  Company Number: BR-ABBVIE-20K-020-3319841-00

PATIENT
  Sex: Female
  Weight: 52 kg

DRUGS (2)
  1. HUMIRA [Suspect]
     Active Substance: ADALIMUMAB
     Indication: RHEUMATOID ARTHRITIS
     Route: 058
     Dates: start: 20080209, end: 20200319
  2. HUMIRA [Suspect]
     Active Substance: ADALIMUMAB
     Route: 058
     Dates: start: 2020, end: 20200620

REACTIONS (11)
  - Onychomadesis [Unknown]
  - Weight decreased [Not Recovered/Not Resolved]
  - Diabetes mellitus [Recovering/Resolving]
  - Herpes zoster [Not Recovered/Not Resolved]
  - Anaemia [Not Recovered/Not Resolved]
  - Cataract [Unknown]
  - Malabsorption [Not Recovered/Not Resolved]
  - Blindness [Not Recovered/Not Resolved]
  - Nail bed inflammation [Not Recovered/Not Resolved]
  - Bruxism [Not Recovered/Not Resolved]
  - Tremor [Not Recovered/Not Resolved]

NARRATIVE: CASE EVENT DATE: 2016
